FAERS Safety Report 9559907 (Version 1)
Quarter: 2013Q3

REPORT INFORMATION
  Report Type: Spontaneous
  Country: US (occurrence: None)
  Receive Date: 20130906
  Receipt Date: 20130906
  Transmission Date: 20140515
  Serious: Yes (Hospitalization)
  Sender: FDA-Public Use
  Company Number: 163-POMAL-13074367

PATIENT
  Age: 72 Year
  Sex: Male
  Weight: 94.35 kg

DRUGS (10)
  1. POMALYST [Suspect]
     Indication: PLASMA CELL MYELOMA
     Dosage: 21 IN 28 D
     Route: 048
     Dates: start: 20130530
  2. DEXAMETHASONE (DEXAMETHASONE) (UNKNOWN) [Concomitant]
  3. ESOMEPRAZOLE (ESOMEPRAZOLE) (UNKNOWN) [Concomitant]
  4. CARVEDILOL (CARVEDILOL) (UNKNOWN) [Concomitant]
  5. ACYCLOVIR (ACICLOVIR) (UNKNOWN) [Concomitant]
  6. KCL (POTASSIIUM CHLORIDE) (UNKNOWN) [Concomitant]
  7. AMLODIPINE (AMLODIPINE) (UNKNOWN) [Concomitant]
  8. AMITRIPTYLINE (AMITRIPTYLINE) (UNKNOWN) [Concomitant]
  9. TRICOR (FENOFIBRATE) (UNKNOWN) [Concomitant]
  10. MEPRON (ATOVAQUONE) (UNKNOWN) [Concomitant]

REACTIONS (2)
  - Platelet count decreased [None]
  - White blood cell count decreased [None]
